FAERS Safety Report 10663945 (Version 2)
Quarter: 2015Q1

REPORT INFORMATION
  Report Type: Spontaneous
  Country: US (occurrence: None)
  Receive Date: 20141217
  Receipt Date: 20150324
  Transmission Date: 20150720
  Serious: Yes (Hospitalization)
  Sender: FDA-Public Use
  Company Number: 201412009

PATIENT
  Age: 54 Year
  Sex: Male
  Weight: 126.55 kg

DRUGS (9)
  1. TESTIM [Suspect]
     Active Substance: TESTOSTERONE
     Indication: BLOOD TESTOSTERONE DECREASED
     Route: 062
     Dates: start: 20110701, end: 201112
  2. IBUPROFEN. [Concomitant]
     Active Substance: IBUPROFEN
  3. ANDROGEL [Suspect]
     Active Substance: TESTOSTERONE
     Indication: BLOOD TESTOSTERONE DECREASED
     Dates: start: 20110605, end: 201107
  4. DIOVAN HCT (HYDROCHLOROTHIAZIDE, VALSARTAN) [Concomitant]
  5. NIASPAN ER (NICOTINIC ACID) [Concomitant]
  6. HYDROXYZINE [Concomitant]
     Active Substance: HYDROXYZINE\HYDROXYZINE HYDROCHLORIDE
  7. OXYCODONE/APAP (PARACETAMOL, OXYCODONE HYDROCHLORIDE, OXYCODONE TEREPHTHALATE) [Concomitant]
  8. TAMSULOSIN [Concomitant]
     Active Substance: TAMSULOSIN
  9. HYZAAR (HYDROCHLOROTHIAZIDE, LOSARTAN POTASSIUM) [Concomitant]

REACTIONS (11)
  - Economic problem [None]
  - Pain [None]
  - Acute myocardial infarction [None]
  - Anhedonia [None]
  - Impaired work ability [None]
  - Anxiety [None]
  - Myocardial infarction [None]
  - Metabolic syndrome [None]
  - Thrombosis [None]
  - Fear [None]
  - Ventricular fibrillation [None]

NARRATIVE: CASE EVENT DATE: 20111223
